FAERS Safety Report 21947243 (Version 2)
Quarter: 2023Q1

REPORT INFORMATION
  Report Type: Spontaneous
  Country: US (occurrence: US)
  Receive Date: 20230202
  Receipt Date: 20230301
  Transmission Date: 20230418
  Serious: No
  Sender: FDA-Public Use
  Company Number: US-ALKERMES INC.-ALK-2023-000435

PATIENT
  Age: 27 Year
  Sex: Female
  Weight: 77.551 kg

DRUGS (1)
  1. VIVITROL [Suspect]
     Active Substance: NALTREXONE
     Indication: Drug dependence
     Dosage: 380 MILLIGRAM, QMO
     Route: 030
     Dates: start: 20221227

REACTIONS (4)
  - Coronavirus infection [Recovering/Resolving]
  - Injection site reaction [Unknown]
  - Injection site mass [Unknown]
  - Injection site induration [Unknown]

NARRATIVE: CASE EVENT DATE: 20230201
